FAERS Safety Report 9661026 (Version 1)
Quarter: 2013Q4

REPORT INFORMATION
  Report Type: Spontaneous
  Country: US (occurrence: US)
  Receive Date: 20131031
  Receipt Date: 20131031
  Transmission Date: 20140711
  Serious: Yes (Hospitalization)
  Sender: FDA-Public Use
  Company Number: US-GLAXOSMITHKLINE-A1047298A

PATIENT
  Age: 65 Year
  Sex: Female

DRUGS (3)
  1. ADVAIR [Suspect]
     Indication: ASTHMA
     Dosage: 1PUFF AS REQUIRED
     Route: 055
  2. SPIRIVA [Concomitant]
  3. MULTIPLE MEDICATIONS [Concomitant]

REACTIONS (10)
  - Intestinal obstruction [Not Recovered/Not Resolved]
  - Colostomy [Unknown]
  - Procedural haemorrhage [Unknown]
  - Dyspnoea [Not Recovered/Not Resolved]
  - Lung disorder [Not Recovered/Not Resolved]
  - Asthma [Not Recovered/Not Resolved]
  - Procedural complication [Not Recovered/Not Resolved]
  - Depression [Not Recovered/Not Resolved]
  - Drug administration error [Unknown]
  - Overdose [Unknown]
